FAERS Safety Report 19648280 (Version 1)
Quarter: 2021Q3

REPORT INFORMATION
  Report Type: Spontaneous
  Country: IN (occurrence: IN)
  Receive Date: 20210802
  Receipt Date: 20210802
  Transmission Date: 20211014
  Serious: Yes (Death)
  Sender: FDA-Public Use
  Company Number: IN-PFIZER INC-2021147223

PATIENT
  Age: 61 Year
  Sex: Female

DRUGS (4)
  1. CCM [Concomitant]
     Dosage: 1?0?0 30 DAYS
  2. BRONCOREX [Concomitant]
     Dosage: 2 HP?2 HP?2HP
  3. PALBACE [Suspect]
     Active Substance: PALBOCICLIB
     Indication: BREAST CANCER METASTATIC
     Dosage: 125 MG, 1X/DAY
     Route: 048
     Dates: start: 20200626, end: 20210607
  4. LETRONAT [Concomitant]
     Dosage: 2.5 MG, 0?0?1 30 DAYS

REACTIONS (2)
  - Death [Fatal]
  - Anxiety [Unknown]
